FAERS Safety Report 16878216 (Version 2)
Quarter: 2019Q4

REPORT INFORMATION
  Report Type: Report from Study
  Country: ZA (occurrence: ZA)
  Receive Date: 20191002
  Receipt Date: 20191031
  Transmission Date: 20200122
  Serious: Yes (Other)
  Sender: FDA-Public Use
  Company Number: ZA-SA-2019SA268385

PATIENT
  Age: 56 Year
  Sex: Female

DRUGS (5)
  1. ADCO-SIMVASTATIN [Concomitant]
     Active Substance: SIMVASTATIN
     Dosage: 10 MG, HS(BT)
     Dates: start: 20180806
  2. INSULIN GLULISINE [Suspect]
     Active Substance: INSULIN GLULISINE
     Dosage: 4 U, TID (BEFORE BREAKFAST, BEFORE LUNCH, BEFORE SUPPER)
     Dates: start: 20190701
  3. VILDAGLIPTIN [Concomitant]
     Active Substance: VILDAGLIPTIN
     Dosage: 50 MG, BID (BEFORE BREAKFAST, BEFORE SUPPER)
     Dates: start: 20180709
  4. INSULIN GLARGINE [Suspect]
     Active Substance: INSULIN GLARGINE
     Dosage: BT-34 UNITS
     Dates: start: 20190701
  5. METFORMIN [Concomitant]
     Active Substance: METFORMIN HYDROCHLORIDE
     Dosage: 850 MG, BID (BEFORE BREAKFATS, BEFORE SUPPER)
     Dates: start: 20180709

REACTIONS (4)
  - Blood glucose decreased [Not Recovered/Not Resolved]
  - Condition aggravated [Not Recovered/Not Resolved]
  - Breast abscess [Recovered/Resolved]
  - Breast mass [Not Recovered/Not Resolved]

NARRATIVE: CASE EVENT DATE: 20190922
